FAERS Safety Report 4804578-5 (Version None)
Quarter: 2005Q4

REPORT INFORMATION
  Report Type: 
  Country: None (occurrence: None)
  Receive Date: 20051020
  Receipt Date: 20050718
  Transmission Date: 20060501
  Serious: Yes (Hospitalization, Other)
  Sender: FDA-Public Use
  Company Number: US-MERCK-0507USA02988

PATIENT
  Age: 85 Year
  Sex: Female
  Weight: 65 kg

DRUGS (6)
  1. TYLENOL (CAPLET) [Concomitant]
     Route: 065
  2. XALATAN [Concomitant]
     Route: 065
  3. DIOVAN [Concomitant]
     Route: 065
  4. TOPROL-XL [Concomitant]
     Route: 065
  5. KLOR-CON [Concomitant]
     Route: 065
  6. VIOXX [Suspect]
     Route: 048
     Dates: start: 20030902, end: 20040406

REACTIONS (2)
  - ACUTE MYOCARDIAL INFARCTION [None]
  - CEREBROVASCULAR ACCIDENT [None]
